FAERS Safety Report 4378672-X (Version None)
Quarter: 2004Q2

REPORT INFORMATION
  Report Type: 
  Country: None (occurrence: None)
  Receive Date: 20040610
  Receipt Date: 20040603
  Transmission Date: 20050107
  Serious: Yes (Other)
  Sender: FDA-Public Use
  Company Number: 001#1#2004-00117

PATIENT
  Age: 69 Year
  Sex: Male

DRUGS (1)
  1. ALPROSTADIL [Suspect]
     Indication: PERIPHERAL VASCULAR DISORDER
     Dates: start: 20040201

REACTIONS (4)
  - DIALYSIS [None]
  - DYSPNOEA [None]
  - OXYGEN SATURATION DECREASED [None]
  - PCO2 INCREASED [None]
